FAERS Safety Report 19934819 (Version 1)
Quarter: 2021Q4

REPORT INFORMATION
  Report Type: Report from Study
  Country: GB (occurrence: GB)
  Receive Date: 20211008
  Receipt Date: 20211008
  Transmission Date: 20220303
  Serious: Yes (Other)
  Sender: FDA-Public Use
  Company Number: GB-TEVA-2021-GB-1963675

PATIENT
  Age: 79 Year
  Sex: Male

DRUGS (1)
  1. OCTREOTIDE [Suspect]
     Active Substance: OCTREOTIDE
     Route: 065

REACTIONS (5)
  - Gait inability [Unknown]
  - Pain in extremity [Unknown]
  - Injection site reaction [Unknown]
  - Asthenia [Unknown]
  - Trigger finger [Unknown]

NARRATIVE: CASE EVENT DATE: 20210929
